FAERS Safety Report 13686699 (Version 1)
Quarter: 2017Q2

REPORT INFORMATION
  Report Type: Spontaneous
  Country: DE (occurrence: DE)
  Receive Date: 20170623
  Receipt Date: 20170623
  Transmission Date: 20170830
  Serious: Yes (Other)
  Sender: FDA-Public Use
  Company Number: DE-ASTRAZENECA-2016SF21151

PATIENT
  Age: 49 Year
  Sex: Female

DRUGS (1)
  1. LYNPARZA [Suspect]
     Active Substance: OLAPARIB
     Route: 048
     Dates: start: 20150701

REACTIONS (6)
  - Stomatitis [Recovered/Resolved]
  - Carbohydrate antigen 125 increased [Unknown]
  - Dizziness [Recovered/Resolved]
  - Night sweats [Unknown]
  - Alopecia [Unknown]
  - Ascites [Unknown]

NARRATIVE: CASE EVENT DATE: 20160330
